FAERS Safety Report 8600669 (Version 4)
Quarter: 2013Q3

REPORT INFORMATION
  Report Type: Spontaneous
  Country: US (occurrence: US)
  Receive Date: 20120606
  Receipt Date: 20130812
  Transmission Date: 20140515
  Serious: Yes (Hospitalization, Other)
  Sender: FDA-Public Use
  Company Number: US-BAYER-2012-055548

PATIENT
  Age: 27 Year
  Sex: Female
  Weight: 90.25 kg

DRUGS (17)
  1. OCELLA [Suspect]
     Indication: CONTRACEPTION
     Dosage: UNK
     Dates: start: 20090506, end: 20091113
  2. CALCIUM [Concomitant]
     Dosage: 600 MG + D 600-200MG
     Dates: start: 20091116
  3. MULTIVITAMIN [Concomitant]
     Dosage: UNK UNK, QD
     Dates: start: 20091116
  4. OTHER ANALGESICS AND ANTIPYRETICS [Concomitant]
     Dosage: 1-2 TABS EVERY 8 HOURS PRN
     Dates: start: 20091121
  5. ERYTHROMYCIN [Concomitant]
  6. AMOXICILLIN [Concomitant]
     Dosage: 500 MG, UNK
  7. LIPITOR [Concomitant]
     Indication: HYPERLIPIDAEMIA
     Dosage: 10 MG, UNK
     Dates: start: 20091118
  8. ATIVAN [Concomitant]
  9. KAPIDEX [Concomitant]
  10. VITAMIN D [Concomitant]
  11. ANTIVERT [Concomitant]
     Indication: VERTIGO
     Dosage: 25 MG, UNK
  12. COMPAZINE [Concomitant]
     Indication: NAUSEA
  13. COMPAZINE [Concomitant]
     Indication: VOMITING
  14. BENADRYL [Concomitant]
     Indication: NAUSEA
  15. BENADRYL [Concomitant]
     Indication: VOMITING
  16. TORADOL [Concomitant]
  17. HYDROCODONE W/APAP [Concomitant]
     Dosage: 5-500 MG, UNK

REACTIONS (17)
  - Cerebrovascular accident [None]
  - Paradoxical embolism [None]
  - Pain [None]
  - Pain [None]
  - Hypoaesthesia [None]
  - Paraesthesia [None]
  - Vomiting [None]
  - Dizziness [None]
  - Angina pectoris [None]
  - Dyspnoea [None]
  - Palpitations [None]
  - Orthostatic intolerance [None]
  - Cerebral infarction [None]
  - Anxiety [None]
  - Mental disorder [None]
  - Vertigo [None]
  - Fatigue [None]
